FAERS Safety Report 9026687 (Version 1)
Quarter: 2013Q1

REPORT INFORMATION
  Report Type: Spontaneous
  Country: US (occurrence: None)
  Receive Date: 20130114
  Receipt Date: 20130114
  Transmission Date: 20140127
  Serious: Yes (Other)
  Sender: FDA-Public Use
  Company Number: None

PATIENT
  Age: 87 Year
  Sex: Female
  Weight: 63.05 kg

DRUGS (1)
  1. CYMBALTA [Suspect]
     Indication: CANCER PAIN
     Dates: start: 20121205

REACTIONS (6)
  - Dizziness [None]
  - Hyperhidrosis [None]
  - Chills [None]
  - Tremor [None]
  - Nausea [None]
  - Vomiting [None]
